FAERS Safety Report 8421946-3 (Version None)
Quarter: 2012Q2

REPORT INFORMATION
  Report Type: 
  Country: None (occurrence: None)
  Receive Date: 20120608
  Receipt Date: 20120530
  Transmission Date: 20120825
  Serious: Yes (Death)
  Sender: FDA-Public Use
  Company Number: FR-EISAI INC-E3810-05596-SPO-FR

PATIENT
  Sex: Male

DRUGS (11)
  1. ALFUZOSIN HCL [Concomitant]
     Route: 048
  2. LASIX [Concomitant]
     Route: 048
  3. RABEPRAZOLE SODIUM [Suspect]
     Route: 048
     Dates: start: 20120301, end: 20120406
  4. ALDALIX [Concomitant]
     Route: 048
  5. ESCITALOPRAM [Concomitant]
     Route: 048
  6. COLCHICINE [Suspect]
     Route: 048
     Dates: start: 20120301, end: 20120101
  7. NEBIVOLOL HCL [Concomitant]
     Route: 048
  8. LOVENOX [Suspect]
     Route: 003
     Dates: start: 20120306, end: 20120101
  9. LEVOTHYROXINE SODIUM [Concomitant]
     Route: 048
  10. ASPIRIN [Concomitant]
     Route: 048
  11. AUGMENTIN [Suspect]
     Route: 042
     Dates: start: 20120306, end: 20120101

REACTIONS (3)
  - CHOLESTASIS [None]
  - HYPERBILIRUBINAEMIA [None]
  - JAUNDICE [None]
